FAERS Safety Report 17112549 (Version 1)
Quarter: 2019Q4

REPORT INFORMATION
  Report Type: Spontaneous
  Country: IT (occurrence: IT)
  Receive Date: 20191204
  Receipt Date: 20191204
  Transmission Date: 20200122
  Serious: Yes (Disabling)
  Sender: FDA-Public Use
  Company Number: IT-MYLANLABS-2019M1118345

PATIENT
  Age: 24 Year
  Sex: Female
  Weight: 63 kg

DRUGS (1)
  1. LEVOFLOXACIN. [Suspect]
     Active Substance: LEVOFLOXACIN
     Indication: URINARY TRACT INFECTION
     Dosage: 500 MILLIGRAM, QD
     Route: 048
     Dates: start: 20190223, end: 20190228

REACTIONS (4)
  - Adverse drug reaction [Not Recovered/Not Resolved]
  - Headache [Not Recovered/Not Resolved]
  - Vertigo [Not Recovered/Not Resolved]
  - Depressive symptom [Not Recovered/Not Resolved]

NARRATIVE: CASE EVENT DATE: 20190326
